FAERS Safety Report 6552446-3 (Version None)
Quarter: 2010Q1

REPORT INFORMATION
  Report Type: 
  Country: None (occurrence: None)
  Receive Date: 20100121
  Receipt Date: 20100114
  Transmission Date: 20100710
  Serious: Yes (Disabling)
  Sender: FDA-Public Use
  Company Number: TRP_06739_2010

PATIENT
  Sex: Male

DRUGS (2)
  1. RIBAPAK (NOT SPECIFIED) [Suspect]
     Indication: HEPATITIS C
     Dosage: [CUT IN HALF OR 3 TO 4 WEEKS] ORAL)
     Route: 048
     Dates: start: 20091030, end: 20091228
  2. PEG-INTRON [Suspect]
     Indication: HEPATITIS C
     Dosage: [CUT IN HALF FOR 3 TO 4 WEEKS] SUBCUTANEOUS)
     Route: 058
     Dates: start: 20091030, end: 20091228

REACTIONS (2)
  - IMPAIRED WORK ABILITY [None]
  - WHITE BLOOD CELL COUNT DECREASED [None]
